FAERS Safety Report 23720192 (Version 3)
Quarter: 2024Q2

REPORT INFORMATION
  Report Type: Other
  Country: US (occurrence: US)
  Receive Date: 20240408
  Receipt Date: 20240523
  Transmission Date: 20240716
  Serious: Yes (Other)
  Sender: FDA-Public Use
  Company Number: US-Rhythm Pharmaceuticals, Inc.-2023RHM000231

PATIENT
  Age: 12 Year
  Sex: Female

DRUGS (10)
  1. IMCIVREE [Suspect]
     Active Substance: SETMELANOTIDE
     Indication: Gene mutation
     Route: 058
  2. IMCIVREE [Suspect]
     Active Substance: SETMELANOTIDE
     Route: 058
     Dates: end: 20230729
  3. IMCIVREE [Suspect]
     Active Substance: SETMELANOTIDE
     Route: 058
     Dates: start: 20230730, end: 20230731
  4. IMCIVREE [Suspect]
     Active Substance: SETMELANOTIDE
     Route: 058
     Dates: start: 20230801, end: 20230801
  5. IMCIVREE [Suspect]
     Active Substance: SETMELANOTIDE
     Route: 058
     Dates: start: 202401
  6. IMCIVREE [Suspect]
     Active Substance: SETMELANOTIDE
     Route: 058
  7. IMCIVREE [Suspect]
     Active Substance: SETMELANOTIDE
     Route: 058
  8. IMCIVREE [Suspect]
     Active Substance: SETMELANOTIDE
     Route: 058
  9. SAXENDA [Concomitant]
     Active Substance: LIRAGLUTIDE
     Indication: Product used for unknown indication
     Route: 065
  10. VITAMINS [Concomitant]
     Active Substance: VITAMINS
     Indication: Product used for unknown indication
     Route: 065

REACTIONS (18)
  - Loss of consciousness [Recovered/Resolved]
  - Dyspnoea [Recovered/Resolved]
  - Pallor [Recovered/Resolved]
  - Feeling abnormal [Recovered/Resolved]
  - Apraxia [Recovered/Resolved]
  - Off label use [Recovered/Resolved]
  - Accidental overdose [Recovered/Resolved]
  - Cyanosis [Recovered/Resolved]
  - Injection site rash [Unknown]
  - Incorrect dose administered [Recovered/Resolved]
  - Tongue discolouration [Recovered/Resolved]
  - Therapy non-responder [Recovered/Resolved]
  - Skin hyperpigmentation [Recovered/Resolved]
  - Vomiting [Recovered/Resolved]
  - Injection site nodule [Not Recovered/Not Resolved]
  - Skin discolouration [Unknown]
  - Injection site bruising [Unknown]
  - Injection site pain [Unknown]

NARRATIVE: CASE EVENT DATE: 20230523
